FAERS Safety Report 6158563-4 (Version None)
Quarter: 2009Q2

REPORT INFORMATION
  Report Type: 
  Country: None (occurrence: None)
  Receive Date: 20090415
  Receipt Date: 20090415
  Transmission Date: 20091009
  Serious: No
  Sender: FDA-Public Use
  Company Number: None

PATIENT
  Age: 45 Year
  Sex: Male
  Weight: 104.3273 kg

DRUGS (3)
  1. AZITHROMYCIN [Suspect]
     Indication: INFLUENZA
     Dosage: 2 TABLETS 1ST DAY PO; 1 TABLET DAYS 2-5
     Route: 048
     Dates: start: 20090410, end: 20090412
  2. AZITHROMYCIN [Suspect]
     Indication: PHARYNGITIS
     Dosage: 2 TABLETS 1ST DAY PO; 1 TABLET DAYS 2-5
     Route: 048
     Dates: start: 20090410, end: 20090412
  3. AZITHROMYCIN [Suspect]
     Indication: SINUSITIS
     Dosage: 2 TABLETS 1ST DAY PO; 1 TABLET DAYS 2-5
     Route: 048
     Dates: start: 20090410, end: 20090412

REACTIONS (3)
  - PRODUCT QUALITY ISSUE [None]
  - RASH GENERALISED [None]
  - URTICARIA [None]
